FAERS Safety Report 16063552 (Version 1)
Quarter: 2019Q1

REPORT INFORMATION
  Report Type: Report from Study
  Country: US (occurrence: US)
  Receive Date: 20190312
  Receipt Date: 20190312
  Transmission Date: 20190418
  Serious: Yes (Hospitalization)
  Sender: FDA-Public Use
  Company Number: US-JNJFOC-20190311582

PATIENT
  Age: 58 Year
  Sex: Male

DRUGS (26)
  1. VANCOMYCIN [Concomitant]
     Active Substance: VANCOMYCIN
  2. BRIMONIDINE [Concomitant]
     Active Substance: BRIMONIDINE TARTRATE
  3. PROPYLENE GLYCOL [Concomitant]
     Active Substance: PROPYLENE GLYCOL
  4. FAMOTIDINE. [Concomitant]
     Active Substance: FAMOTIDINE
  5. ERGOCALCIFEROL. [Concomitant]
     Active Substance: ERGOCALCIFEROL
  6. LORATADINE. [Concomitant]
     Active Substance: LORATADINE
  7. IMBRUVICA [Suspect]
     Active Substance: IBRUTINIB
     Indication: CHRONIC LYMPHOCYTIC LEUKAEMIA
     Route: 048
     Dates: start: 20190125, end: 201902
  8. NYSTATIN. [Concomitant]
     Active Substance: NYSTATIN
  9. HUMALOG [Concomitant]
     Active Substance: INSULIN LISPRO
  10. LANTUS [Concomitant]
     Active Substance: INSULIN GLARGINE
  11. TIMOLOL. [Concomitant]
     Active Substance: TIMOLOL
  12. FLAGYL [Concomitant]
     Active Substance: METRONIDAZOLE\METRONIDAZOLE HYDROCHLORIDE
  13. XARELTO [Concomitant]
     Active Substance: RIVAROXABAN
  14. LATANOPROST. [Concomitant]
     Active Substance: LATANOPROST
  15. AFRIN [Concomitant]
     Active Substance: OXYMETAZOLINE
  16. METHYLPHENIDATE. [Concomitant]
     Active Substance: METHYLPHENIDATE
  17. DORZOLAMIDE [Concomitant]
     Active Substance: DORZOLAMIDE
  18. CHLOROTHIAZIDE. [Concomitant]
     Active Substance: CHLOROTHIAZIDE
  19. SALINE [Concomitant]
     Active Substance: SODIUM CHLORIDE
  20. AZTREONAM. [Concomitant]
     Active Substance: AZTREONAM
  21. GENTAMICIN. [Concomitant]
     Active Substance: GENTAMICIN
  22. PROZAC [Concomitant]
     Active Substance: FLUOXETINE HYDROCHLORIDE
  23. IMBRUVICA [Suspect]
     Active Substance: IBRUTINIB
     Indication: CHRONIC LYMPHOCYTIC LEUKAEMIA
     Route: 048
     Dates: start: 2019
  24. MOXIFLOXACIN. [Concomitant]
     Active Substance: MOXIFLOXACIN
  25. AMLODIPINE [Concomitant]
     Active Substance: AMLODIPINE BESYLATE
  26. ADVAIR HFA [Concomitant]
     Active Substance: FLUTICASONE PROPIONATE\SALMETEROL XINAFOATE

REACTIONS (3)
  - Diarrhoea [Unknown]
  - Eye disorder [Unknown]
  - Sinusitis [Unknown]

NARRATIVE: CASE EVENT DATE: 20190203
